FAERS Safety Report 4930215-5 (Version None)
Quarter: 2006Q1

REPORT INFORMATION
  Report Type: 
  Country: None (occurrence: None)
  Receive Date: 20060302
  Receipt Date: 20051006
  Transmission Date: 20060701
  Serious: Yes (Hospitalization)
  Sender: FDA-Public Use
  Company Number: US-ROCHE-423502

PATIENT
  Age: 59 Year
  Sex: Male
  Weight: 97.7 kg

DRUGS (2)
  1. CAPECITABINE [Suspect]
     Indication: RECTAL CANCER
     Dosage: 825 MG/ M2 Q12 HOURS (1650 MG/ M2/DAY) ORALLY DAILY (7 DAYS PER WEEK)
     Route: 048
     Dates: start: 20050619, end: 20050728
  2. OXALIPLATIN [Suspect]
     Indication: RECTAL CANCER
     Dosage: 60 MG/ M2 IV OVER 2 HOURS DAYS 1, 8, 15, 22, 29.
     Route: 042
     Dates: start: 20050620, end: 20050718

REACTIONS (6)
  - BLOOD CREATININE INCREASED [None]
  - BLOOD UREA INCREASED [None]
  - HAEMOGLOBIN DECREASED [None]
  - HYPERGLYCAEMIA [None]
  - HYPERKALAEMIA [None]
  - HYPOMAGNESAEMIA [None]
